FAERS Safety Report 26140771 (Version 1)
Quarter: 2025Q4

REPORT INFORMATION
  Report Type: Spontaneous
  Country: EU (occurrence: EU)
  Receive Date: 20251210
  Receipt Date: 20251210
  Transmission Date: 20260118
  Serious: Yes (Death)
  Sender: INCYTE
  Company Number: EU-002147023-NVSC2025IT187465

PATIENT
  Age: 77 Year

DRUGS (2)
  1. RUXOLITINIB [Suspect]
     Active Substance: RUXOLITINIB
     Indication: Myelofibrosis
     Dosage: UNK
     Route: 065
  2. FEDRATINIB [Concomitant]
     Active Substance: FEDRATINIB
     Indication: Myelofibrosis
     Dosage: UNK
     Route: 065

REACTIONS (2)
  - Myelofibrosis [Fatal]
  - Drug ineffective [Unknown]
